FAERS Safety Report 7687958-2 (Version None)
Quarter: 2011Q3

REPORT INFORMATION
  Report Type: 
  Country: None (occurrence: None)
  Receive Date: 20110817
  Receipt Date: 20110804
  Transmission Date: 20111222
  Serious: Yes (Hospitalization, Other)
  Sender: FDA-Public Use
  Company Number: JP-ELI_LILLY_AND_COMPANY-JP201106004359

PATIENT
  Age: 84 Year
  Sex: Male

DRUGS (2)
  1. FORTEO [Suspect]
     Dosage: UNK
     Route: 058
     Dates: end: 20110601
  2. FORTEO [Suspect]
     Dosage: UNK
     Route: 058
     Dates: start: 20110601

REACTIONS (2)
  - ROAD TRAFFIC ACCIDENT [None]
  - CEREBROVASCULAR DISORDER [None]
